FAERS Safety Report 16190995 (Version 3)
Quarter: 2019Q2

REPORT INFORMATION
  Report Type: Spontaneous
  Country: GB (occurrence: GB)
  Receive Date: 20190412
  Receipt Date: 20190521
  Transmission Date: 20190711
  Serious: Yes (Life-Threatening, Hospitalization, Other)
  Sender: FDA-Public Use
  Company Number: GB-SA-2019SA099865

PATIENT
  Age: 38 Year
  Sex: Male

DRUGS (7)
  1. LEMTRADA [Suspect]
     Active Substance: ALEMTUZUMAB
     Indication: RELAPSING-REMITTING MULTIPLE SCLEROSIS
     Dosage: 12 MG, QD
     Route: 042
     Dates: start: 20180610, end: 20180615
  2. BUTTERCUP BRONCHOSTOP [THYMUS VULGARIS;THYMUS ZYGIS] [Concomitant]
  3. TAMIFLU [Concomitant]
     Active Substance: OSELTAMIVIR PHOSPHATE
  4. OSELTAMIVIR [Concomitant]
     Active Substance: OSELTAMIVIR
     Indication: INFLUENZA
     Dosage: UNK
     Route: 065
     Dates: start: 201802
  5. BRONCHOSTOP [PRIMULA SPP. EXTRACT;THYMUS VULGARIS EXTRACT] [Concomitant]
     Indication: COUGH
     Route: 065
  6. CO-AMOXICLAV [AMOXICILLIN SODIUM;CLAVULANATE POTASSIUM] [Concomitant]
     Active Substance: AMOXICILLIN\CLAVULANATE POTASSIUM
     Route: 065
  7. PIRITON [Concomitant]
     Active Substance: CHLORPHENIRAMINE MALEATE

REACTIONS (32)
  - Immune thrombocytopenic purpura [Recovered/Resolved with Sequelae]
  - Generalised tonic-clonic seizure [Unknown]
  - Platelet count decreased [Recovering/Resolving]
  - Purpura [Unknown]
  - Petechiae [Unknown]
  - Febrile neutropenia [Unknown]
  - Vomiting [Unknown]
  - Monocyte count abnormal [Unknown]
  - Myeloblast count decreased [Unknown]
  - Subdural haemorrhage [Unknown]
  - Haemorrhage [Recovered/Resolved]
  - Haemoglobin abnormal [Unknown]
  - Mean cell haemoglobin concentration abnormal [Unknown]
  - Cerebral haemorrhage [Unknown]
  - Headache [Unknown]
  - Neutrophil count abnormal [Unknown]
  - Lymphocyte count abnormal [Unknown]
  - Condition aggravated [Unknown]
  - Blood blister [Unknown]
  - Pyrexia [Unknown]
  - Marrow hyperplasia [Unknown]
  - Proerythroblast count abnormal [Unknown]
  - White blood cell count abnormal [Unknown]
  - Eosinophil count abnormal [Unknown]
  - Autoimmune haemolytic anaemia [Unknown]
  - Contusion [Unknown]
  - Thrombocytopenia [Unknown]
  - Red blood cell count abnormal [Unknown]
  - Basophil count abnormal [Unknown]
  - Haematocrit abnormal [Unknown]
  - Mean cell volume abnormal [Unknown]
  - Thyroid function test abnormal [Unknown]

NARRATIVE: CASE EVENT DATE: 2019
